FAERS Safety Report 15606188 (Version 2)
Quarter: 2019Q2

REPORT INFORMATION
  Report Type: Spontaneous
  Country: US (occurrence: US)
  Receive Date: 20181112
  Receipt Date: 20190528
  Transmission Date: 20190711
  Serious: Yes (Other)
  Sender: FDA-Public Use
  Company Number: US-ROCHE-2211698

PATIENT
  Sex: Female

DRUGS (8)
  1. KLONOPIN [Suspect]
     Active Substance: CLONAZEPAM
     Indication: OBSESSIVE-COMPULSIVE DISORDER
     Route: 065
  2. BENADRYL [Concomitant]
     Active Substance: DIPHENHYDRAMINE HYDROCHLORIDE
  3. KLONOPIN [Suspect]
     Active Substance: CLONAZEPAM
     Indication: ANXIETY
  4. LAMICTAL [Concomitant]
     Active Substance: LAMOTRIGINE
  5. CLOMIPHENE CITRATE. [Concomitant]
     Active Substance: CLOMIPHENE CITRATE
  6. TYLENOL [Concomitant]
     Active Substance: ACETAMINOPHEN
  7. ANASTROZOLE. [Concomitant]
     Active Substance: ANASTROZOLE
  8. KEPPRA [Concomitant]
     Active Substance: LEVETIRACETAM

REACTIONS (12)
  - Suicidal ideation [Unknown]
  - Insomnia [Unknown]
  - Depression [Unknown]
  - Hair colour changes [Unknown]
  - Pain in extremity [Unknown]
  - Nightmare [Unknown]
  - Hallucination, auditory [Unknown]
  - Weight increased [Unknown]
  - Alopecia [Unknown]
  - Aggression [Unknown]
  - Drug ineffective [Unknown]
  - Drug withdrawal syndrome [Unknown]

NARRATIVE: CASE EVENT DATE: 201710
